FAERS Safety Report 7621718-3 (Version None)
Quarter: 2011Q3

REPORT INFORMATION
  Report Type: 
  Country: None (occurrence: None)
  Receive Date: 20110719
  Receipt Date: 20110712
  Transmission Date: 20111222
  Serious: Yes (Hospitalization, Other)
  Sender: FDA-Public Use
  Company Number: US-RB-030333-11

PATIENT
  Sex: Male
  Weight: 180 kg

DRUGS (8)
  1. TOPROL-XL [Concomitant]
     Indication: HYPERTENSION
     Dosage: DOSAGE INFORMATION UNKNOWN
     Route: 065
  2. CLONIDINE [Concomitant]
     Indication: HYPERTENSION
     Dosage: DOSAGE INFORMATION UNKNOWN
     Route: 065
  3. HYDROCHLOROTHIAZIDE [Concomitant]
     Indication: HYPERTENSION
     Dosage: DOSAGE INFORMATION UNKNOWN
     Route: 065
  4. SUBUTEX [Suspect]
     Indication: DRUG DEPENDENCE
     Route: 060
     Dates: start: 20100617, end: 20110621
  5. SUBUTEX [Suspect]
     Route: 060
     Dates: start: 20110622
  6. SUBOXONE [Suspect]
     Indication: DRUG DEPENDENCE
     Route: 060
     Dates: start: 20100317, end: 20100616
  7. METFORMIN HCL [Concomitant]
     Indication: TYPE 2 DIABETES MELLITUS
     Dosage: DOSAGE INFORMATION UNKNOWN
     Route: 065
  8. LASIX [Concomitant]
     Indication: HYPERTENSION
     Dosage: DOSAGE INFORMATION UNKNOWN
     Route: 065

REACTIONS (5)
  - SWELLING FACE [None]
  - GENERALISED OEDEMA [None]
  - PAIN IN EXTREMITY [None]
  - SLEEP APNOEA SYNDROME [None]
  - CONDITION AGGRAVATED [None]
